FAERS Safety Report 8525487-4 (Version None)
Quarter: 2012Q3

REPORT INFORMATION
  Report Type: 
  Country: None (occurrence: None)
  Receive Date: 20120720
  Receipt Date: 20120710
  Transmission Date: 20120928
  Serious: Yes (Hospitalization, Other)
  Sender: FDA-Public Use
  Company Number: JP-VERTEX PHARMACEUTICALS INC.-AE-2012-003438

PATIENT
  Age: 55 Year
  Sex: Male

DRUGS (13)
  1. XYZAL [Concomitant]
     Route: 048
     Dates: start: 20120121
  2. PEG-INTRON [Concomitant]
     Indication: HEPATITIS C
     Route: 058
     Dates: start: 20120121, end: 20120217
  3. REBETOL [Concomitant]
     Route: 048
     Dates: start: 20120311, end: 20120414
  4. PEG-INTRON [Concomitant]
     Route: 058
     Dates: start: 20120303, end: 20120323
  5. PEG-INTRON [Concomitant]
     Route: 058
     Dates: start: 20120218, end: 20120302
  6. TELAVIC (TELAPREVIR) [Suspect]
     Indication: HEPATITIS C
     Route: 048
     Dates: start: 20120121, end: 20120229
  7. TELAVIC (TELAPREVIR) [Suspect]
     Route: 048
     Dates: start: 20120301, end: 20120414
  8. REBETOL [Concomitant]
     Indication: HEPATITIS C
     Route: 048
     Dates: start: 20120121, end: 20120203
  9. REBETOL [Concomitant]
     Route: 048
     Dates: start: 20120204, end: 20120310
  10. REBETOL [Concomitant]
     Route: 048
     Dates: start: 20120513
  11. PEG-INTRON [Concomitant]
     Route: 058
     Dates: start: 20120324
  12. NEXIUM [Concomitant]
     Route: 048
     Dates: end: 20120512
  13. REBETOL [Concomitant]
     Route: 048
     Dates: start: 20120415, end: 20120512

REACTIONS (4)
  - HYPERAMMONAEMIA [None]
  - HEPATIC ENCEPHALOPATHY [None]
  - DEHYDRATION [None]
  - PLATELET COUNT DECREASED [None]
